FAERS Safety Report 17338024 (Version 1)
Quarter: 2020Q1

REPORT INFORMATION
  Report Type: Spontaneous
  Country: AT (occurrence: AT)
  Receive Date: 20200129
  Receipt Date: 20200129
  Transmission Date: 20200409
  Serious: Yes (Death, Life-Threatening, Other)
  Sender: FDA-Public Use
  Company Number: AT-ABBVIE-20K-009-3251471-00

PATIENT

DRUGS (2)
  1. IMBRUVICA [Suspect]
     Active Substance: IBRUTINIB
     Indication: LYMPHOCYTIC LEUKAEMIA
     Route: 048
  2. IMBRUVICA [Suspect]
     Active Substance: IBRUTINIB
     Indication: B-CELL LYMPHOMA

REACTIONS (11)
  - Conduction disorder [Fatal]
  - Haemorrhage [Unknown]
  - Hypertension [Unknown]
  - Ventricular arrhythmia [Unknown]
  - Atrial fibrillation [Unknown]
  - Cardiac failure [Fatal]
  - Arrhythmia supraventricular [Unknown]
  - Arrhythmia [Fatal]
  - Central nervous system haemorrhage [Fatal]
  - Cerebrovascular accident [Fatal]
  - Atrioventricular block [Unknown]
